FAERS Safety Report 13957604 (Version 1)
Quarter: 2017Q3

REPORT INFORMATION
  Report Type: Spontaneous
  Country: US (occurrence: US)
  Receive Date: 20170911
  Receipt Date: 20170911
  Transmission Date: 20171128
  Serious: Yes (Other)
  Sender: FDA-Public Use
  Company Number: US-ROCHE-1130881

PATIENT
  Sex: Female

DRUGS (35)
  1. VINCRISTINE [Concomitant]
     Active Substance: VINCRISTINE
     Route: 065
  2. CYTOTEC [Concomitant]
     Active Substance: MISOPROSTOL
     Route: 065
  3. TUSSI-ORGANIDIN [Concomitant]
     Dosage: 5 CC P.R.N
     Route: 065
  4. METHOTREXATE (METHOTREXATE SODIUM) [Concomitant]
     Active Substance: METHOTREXATE SODIUM
     Route: 065
  5. VP-16 [Concomitant]
     Active Substance: ETOPOSIDE
     Route: 065
  6. CYTOXAN [Concomitant]
     Active Substance: CYCLOPHOSPHAMIDE
     Route: 065
  7. ADRIAMYCIN [Concomitant]
     Active Substance: DOXORUBICIN HYDROCHLORIDE
     Route: 065
  8. CHLORAMBUCIL [Concomitant]
     Active Substance: CHLORAMBUCIL
  9. PREVACID [Concomitant]
     Active Substance: LANSOPRAZOLE
     Route: 065
  10. VP-16 [Concomitant]
     Active Substance: ETOPOSIDE
     Route: 065
  11. METHYLPREDNISOLON [Concomitant]
     Active Substance: METHYLPREDNISOLONE
     Route: 065
  12. BACTRIM DS [Concomitant]
     Active Substance: SULFAMETHOXAZOLE\TRIMETHOPRIM
     Route: 065
  13. CALCIUM [Concomitant]
     Active Substance: CALCIUM
     Route: 065
  14. ALLOPURINOL. [Concomitant]
     Active Substance: ALLOPURINOL
     Route: 065
  15. CLARITIN [Concomitant]
     Active Substance: LORATADINE
     Route: 065
  16. INTERFERON ALFA NOS [Concomitant]
     Active Substance: INTERFERON ALFA-2A OR INTERFERON ALFA-2B
     Dosage: 0.75MG X 10 TO THE 6TH
     Route: 065
  17. LEUCOVORIN. [Concomitant]
     Active Substance: LEUCOVORIN
     Route: 048
  18. LASIX [Concomitant]
     Active Substance: FUROSEMIDE
     Dosage: 80 CC/HOUR
     Route: 065
  19. CISPLATIN. [Concomitant]
     Active Substance: CISPLATIN
     Route: 065
  20. ARA-C [Concomitant]
     Active Substance: CYTARABINE
     Route: 065
  21. FLUDARABINE [Concomitant]
     Active Substance: FLUDARABINE PHOSPHATE
  22. COMBIVENT [Concomitant]
     Active Substance: ALBUTEROL SULFATE\IPRATROPIUM BROMIDE
     Route: 065
  23. LASIX [Concomitant]
     Active Substance: FUROSEMIDE
     Dosage: 60 CC / HOUR
     Route: 065
  24. PREDNISONE. [Concomitant]
     Active Substance: PREDNISONE
     Route: 065
  25. MITOXANTRONE [Concomitant]
     Active Substance: MITOXANTRONE HYDROCHLORIDE
  26. SPORANOX [Concomitant]
     Active Substance: ITRACONAZOLE
     Route: 065
  27. RITUXAN [Suspect]
     Active Substance: RITUXIMAB
     Indication: CHRONIC LYMPHOCYTIC LEUKAEMIA
     Dosage: THROUGH MEDIPORT
     Route: 042
  28. METHOTREXATE (METHOTREXATE SODIUM) [Concomitant]
     Active Substance: METHOTREXATE SODIUM
     Route: 042
  29. VICODIN [Concomitant]
     Active Substance: ACETAMINOPHEN\HYDROCODONE BITARTRATE
  30. LASIX [Concomitant]
     Active Substance: FUROSEMIDE
     Route: 065
  31. IFOSFAMIDE. [Concomitant]
     Active Substance: IFOSFAMIDE
     Route: 065
  32. ARA-C [Concomitant]
     Active Substance: CYTARABINE
     Route: 065
  33. NEUPOGEN [Concomitant]
     Active Substance: FILGRASTIM
  34. INDOCIN [Concomitant]
     Active Substance: INDOMETHACIN
  35. POTASSIUM [Concomitant]
     Active Substance: POTASSIUM
     Route: 065

REACTIONS (6)
  - Palpitations [Unknown]
  - Coccydynia [Unknown]
  - Neoplasm progression [Unknown]
  - Abdominal distension [Unknown]
  - Oedema peripheral [Unknown]
  - Dyspnoea [Unknown]
